FAERS Safety Report 19172350 (Version 1)
Quarter: 2021Q2

REPORT INFORMATION
  Report Type: Spontaneous
  Country: US (occurrence: US)
  Receive Date: 20210422
  Receipt Date: 20210422
  Transmission Date: 20210717
  Serious: No
  Sender: FDA-Public Use
  Company Number: None

PATIENT
  Sex: Male

DRUGS (1)
  1. HUMIRA [Suspect]
     Active Substance: ADALIMUMAB
     Indication: ANKYLOSING SPONDYLITIS
     Route: 058
     Dates: start: 20200504

REACTIONS (5)
  - Ankylosing spondylitis [None]
  - Loss of personal independence in daily activities [None]
  - Therapy interrupted [None]
  - Pain [None]
  - Thrombosis [None]
